FAERS Safety Report 6743518-9 (Version None)
Quarter: 2010Q2

REPORT INFORMATION
  Report Type: 
  Country: None (occurrence: None)
  Receive Date: 20100527
  Receipt Date: 20100514
  Transmission Date: 20101027
  Serious: Yes (Hospitalization)
  Sender: FDA-Public Use
  Company Number: JP-ROCHE-694970

PATIENT
  Sex: Female
  Weight: 65 kg

DRUGS (8)
  1. TOCILIZUMAB [Suspect]
     Indication: RHEUMATOID ARTHRITIS
     Route: 041
     Dates: start: 20091029, end: 20091029
  2. TOCILIZUMAB [Suspect]
     Route: 041
     Dates: start: 20091126, end: 20091126
  3. TOCILIZUMAB [Suspect]
     Route: 041
     Dates: start: 20091224, end: 20091224
  4. TOCILIZUMAB [Suspect]
     Route: 041
     Dates: start: 20100120, end: 20100120
  5. RIMATIL [Concomitant]
     Route: 048
     Dates: end: 20091120
  6. PREDONINE [Concomitant]
     Route: 048
  7. LOXONIN [Concomitant]
     Dosage: REPORTED LOXONIN(LOXOPROFEN SODIUM), DOSE FORM: PERORAL AGENT
     Route: 048
     Dates: start: 20100120
  8. ISCOTIN [Concomitant]
     Dosage: FORM REPORTED AS PREORAL.
     Route: 048
     Dates: start: 20091029, end: 20100120

REACTIONS (1)
  - COLITIS ULCERATIVE [None]
